FAERS Safety Report 20819936 (Version 1)
Quarter: 2022Q2

REPORT INFORMATION
  Report Type: Spontaneous
  Country: DE (occurrence: DE)
  Receive Date: 20220512
  Receipt Date: 20220512
  Transmission Date: 20220720
  Serious: Yes (Death, Life-Threatening, Hospitalization, Other)
  Sender: FDA-Public Use
  Company Number: SK-ALKALOID-2022HQ22999

PATIENT
  Age: 74 Year
  Sex: Male

DRUGS (3)
  1. SPIRONOLACTONE [Suspect]
     Active Substance: SPIRONOLACTONE
     Indication: Amyloidosis senile
     Dosage: 25 MILLIGRAM, QD
  2. BISOPROLOL [Suspect]
     Active Substance: BISOPROLOL
     Indication: Product used for unknown indication
     Dosage: 2.5 MILLIGRAM, QD
  3. TORSEMIDE [Suspect]
     Active Substance: TORSEMIDE
     Indication: Product used for unknown indication
     Dosage: 10 MILLIGRAM, QD

REACTIONS (4)
  - Renal amyloidosis [Fatal]
  - Hypotension [Fatal]
  - Hypovolaemia [Fatal]
  - Acute kidney injury [Fatal]
